FAERS Safety Report 18617141 (Version 1)
Quarter: 2020Q4

REPORT INFORMATION
  Report Type: Spontaneous
  Country: US (occurrence: US)
  Receive Date: 20201214
  Receipt Date: 20201214
  Transmission Date: 20210114
  Serious: Yes (Other)
  Sender: FDA-Public Use
  Company Number: None

PATIENT
  Age: 39 Year
  Sex: Female
  Weight: 63 kg

DRUGS (1)
  1. BAMLANIVIMAB. [Suspect]
     Active Substance: BAMLANIVIMAB
     Indication: SARS-COV-2 TEST POSITIVE
     Route: 041
     Dates: start: 20201210, end: 20201210

REACTIONS (3)
  - Chest discomfort [None]
  - Dyspnoea [None]
  - Therapy interrupted [None]

NARRATIVE: CASE EVENT DATE: 20201210
